FAERS Safety Report 6341405-1 (Version None)
Quarter: 2009Q3

REPORT INFORMATION
  Report Type: 
  Country: None (occurrence: None)
  Receive Date: 20090904
  Receipt Date: 20090826
  Transmission Date: 20100115
  Serious: Yes (Other)
  Sender: FDA-Public Use
  Company Number: GB-ELI_LILLY_AND_COMPANY-GB200908006277

PATIENT
  Age: 40 Year
  Sex: Male

DRUGS (2)
  1. ZYPREXA [Suspect]
     Dosage: 15 MG, DAILY (1/D)
     Dates: start: 20070101
  2. BENZODIAZEPINE DERIVATIVES [Concomitant]

REACTIONS (3)
  - HEPATITIS C [None]
  - MENTAL DISORDER [None]
  - SUICIDE ATTEMPT [None]
